FAERS Safety Report 7724716-4 (Version None)
Quarter: 2011Q3

REPORT INFORMATION
  Report Type: 
  Country: None (occurrence: None)
  Receive Date: 20110901
  Receipt Date: 20110825
  Transmission Date: 20111222
  Serious: Yes (Death)
  Sender: FDA-Public Use
  Company Number: GB-JNJFOC-20110811663

PATIENT
  Age: 89 Year
  Sex: Male

DRUGS (4)
  1. INFLIXIMAB, RECOMBINANT [Suspect]
     Indication: RHEUMATOID ARTHRITIS
     Route: 042
     Dates: start: 20021107
  2. METHOTREXATE [Concomitant]
     Dates: start: 20021107
  3. AZULFIDINE [Concomitant]
     Dates: start: 20021107
  4. HYDROXYCHLOROQUINE [Concomitant]
     Dates: start: 20021107

REACTIONS (2)
  - CEREBRAL INFARCTION [None]
  - BRONCHOPNEUMONIA [None]
